FAERS Safety Report 21053160 (Version 4)
Quarter: 2022Q4

REPORT INFORMATION
  Report Type: Report from Study
  Country: US (occurrence: US)
  Receive Date: 20220707
  Receipt Date: 20221003
  Transmission Date: 20230112
  Serious: Yes (Hospitalization)
  Sender: FDA-Public Use
  Company Number: US-NOVARTISPH-NVSC2022US150472

PATIENT
  Sex: Female

DRUGS (2)
  1. TABRECTA [Suspect]
     Active Substance: CAPMATINIB
     Indication: Lung neoplasm malignant
     Dosage: 400 MG, BID
     Route: 048
     Dates: start: 20220609
  2. TABRECTA [Suspect]
     Active Substance: CAPMATINIB
     Dosage: 300 MG, BID (REDUCED DOSE)
     Route: 048

REACTIONS (13)
  - Anxiety [Unknown]
  - Blood sodium decreased [Unknown]
  - Dyspnoea [Unknown]
  - Pain [Unknown]
  - Abdominal discomfort [Unknown]
  - Hunger [Unknown]
  - Hypoacusis [Recovered/Resolved]
  - Ear discomfort [Recovered/Resolved]
  - Asthenia [Unknown]
  - Decreased appetite [Recovered/Resolved]
  - Fatigue [Unknown]
  - Nausea [Recovering/Resolving]
  - Vomiting [Recovering/Resolving]
